FAERS Safety Report 6625263-3 (Version None)
Quarter: 2010Q1

REPORT INFORMATION
  Report Type: 
  Country: None (occurrence: None)
  Receive Date: 20100310
  Receipt Date: 20090908
  Transmission Date: 20100710
  Serious: No
  Sender: FDA-Public Use
  Company Number: US-BIOGENIDEC-2009BI029152

PATIENT
  Age: 31 Year
  Sex: Female

DRUGS (1)
  1. AVONEX [Suspect]
     Indication: MULTIPLE SCLEROSIS
     Route: 030
     Dates: start: 20081202

REACTIONS (6)
  - BALANCE DISORDER [None]
  - DYSARTHRIA [None]
  - FATIGUE [None]
  - HYPOAESTHESIA [None]
  - INJECTION SITE IRRITATION [None]
  - INJECTION SITE PAIN [None]
